FAERS Safety Report 13904455 (Version 1)
Quarter: 2017Q3

REPORT INFORMATION
  Report Type: Spontaneous
  Country: US (occurrence: US)
  Receive Date: 20170825
  Receipt Date: 20170825
  Transmission Date: 20171127
  Serious: Yes (Other)
  Sender: FDA-Public Use
  Company Number: US-SUN PHARMACEUTICAL INDUSTRIES LTD-2017US-148317

PATIENT
  Age: 58 Year
  Sex: Male

DRUGS (2)
  1. SONIDEGIB [Suspect]
     Active Substance: SONIDEGIB
     Indication: BASAL CELL CARCINOMA
     Dosage: UNK
     Route: 065
     Dates: start: 201505
  2. BKM 120 [Suspect]
     Active Substance: BUPARLISIB HYDROCHLORIDE
     Indication: BASAL CELL CARCINOMA
     Dosage: UNK
     Route: 065
     Dates: start: 201505

REACTIONS (3)
  - Malignant neoplasm progression [Unknown]
  - Therapeutic response decreased [Unknown]
  - Metastases to liver [Unknown]
